FAERS Safety Report 4437101-8 (Version None)
Quarter: 2004Q3

REPORT INFORMATION
  Report Type: 
  Country: None (occurrence: None)
  Receive Date: 20040830
  Receipt Date: 20040630
  Transmission Date: 20050211
  Serious: Yes (Hospitalization)
  Sender: FDA-Public Use
  Company Number: PHBS2004JP08897

PATIENT
  Age: 23 Year
  Sex: Female
  Weight: 49 kg

DRUGS (5)
  1. VOLTAREN [Suspect]
     Indication: ANTIPYRESIS
     Dosage: 25 MG/DAY
     Route: 054
     Dates: start: 20021013, end: 20021014
  2. VOLTAREN [Suspect]
     Dosage: 100 MG/DAY
     Route: 054
     Dates: start: 20021015, end: 20021018
  3. FOSMICIN [Concomitant]
     Indication: INFECTION
     Dosage: 1 G/DAY
     Route: 042
     Dates: start: 20021013, end: 20021017
  4. CLARITHROMYCIN [Concomitant]
     Indication: INFECTION
     Dosage: 200 MG, BID
     Route: 048
     Dates: start: 20021013, end: 20021015
  5. PREDNISOLONE [Concomitant]
     Indication: INFLAMMATION
     Dosage: 5 MG, QID
     Route: 048
     Dates: start: 20021016, end: 20021017

REACTIONS (19)
  - ALANINE AMINOTRANSFERASE INCREASED [None]
  - ASPARTATE AMINOTRANSFERASE INCREASED [None]
  - BLOOD ALKALINE PHOSPHATASE INCREASED [None]
  - BLOOD LACTATE DEHYDROGENASE INCREASED [None]
  - CONVULSION [None]
  - CSF PRESSURE INCREASED [None]
  - DEPRESSED LEVEL OF CONSCIOUSNESS [None]
  - ELECTROENCEPHALOGRAM ABNORMAL [None]
  - ENCEPHALOPATHY [None]
  - HYPERAMMONAEMIA [None]
  - LIVER DISORDER [None]
  - LYMPHADENOPATHY [None]
  - NAUSEA [None]
  - PANIC ATTACK [None]
  - PANIC DISORDER [None]
  - PYREXIA [None]
  - RESPIRATORY TRACT INFECTION [None]
  - REYE'S SYNDROME [None]
  - VOMITING [None]
